FAERS Safety Report 16292443 (Version 1)
Quarter: 2019Q2

REPORT INFORMATION
  Report Type: Spontaneous
  Country: ES (occurrence: ES)
  Receive Date: 20190509
  Receipt Date: 20190509
  Transmission Date: 20190711
  Serious: Yes (Hospitalization)
  Sender: FDA-Public Use
  Company Number: ES-PFIZER INC-2019193833

PATIENT
  Age: 39 Year
  Sex: Female

DRUGS (1)
  1. METOTREXATO WYETH [Suspect]
     Active Substance: METHOTREXATE SODIUM
     Indication: PSORIASIS
     Dosage: 2.5 MG, UNK
     Route: 048

REACTIONS (5)
  - Fibula fracture [Unknown]
  - Fall [Unknown]
  - Ligament rupture [Unknown]
  - Dizziness [Unknown]
  - Tibia fracture [Unknown]
